FAERS Safety Report 9070795 (Version 1)
Quarter: 2013Q1

REPORT INFORMATION
  Report Type: Report from Study
  Country: None (occurrence: US)
  Receive Date: 20130129
  Receipt Date: 20130129
  Transmission Date: 20140127
  Serious: No
  Sender: FDA-Public Use
  Company Number: US-ABBOTT-12P-163-0932406-00

PATIENT
  Age: 40 None
  Sex: Female
  Weight: 65.83 kg

DRUGS (12)
  1. HUMIRA 40 MG/0.8 ML PEN [Suspect]
     Indication: PSORIATIC ARTHROPATHY
     Route: 058
     Dates: start: 200805, end: 2010
  2. HUMIRA 40 MG/0.8 ML PEN [Suspect]
     Route: 058
     Dates: start: 2010, end: 2012
  3. HUMIRA 40 MG/0.8 ML PEN [Suspect]
     Route: 058
     Dates: start: 2012
  4. SYNTHROID [Concomitant]
     Indication: PRODUCT USED FOR UNKNOWN INDICATION
  5. HYDROCODONE [Concomitant]
     Indication: PRODUCT USED FOR UNKNOWN INDICATION
  6. CARISOPRODOL [Concomitant]
     Indication: PAIN
  7. CYMBALTA [Concomitant]
     Indication: PAIN
  8. OMEPRAZOLE [Concomitant]
     Indication: GASTRIC DISORDER
  9. TRAZADONE [Concomitant]
     Indication: SLEEP DISORDER
     Dates: start: 2012
  10. VALCYCLOVIR [Concomitant]
     Indication: STOMATITIS
     Dates: start: 201110, end: 201111
  11. CLOBETASOL CREAM [Concomitant]
     Indication: HAIR DISORDER
  12. CLOBETASOL GEL [Concomitant]
     Indication: DERMATITIS PSORIASIFORM

REACTIONS (7)
  - Scoliosis [Not Recovered/Not Resolved]
  - Pain [Recovered/Resolved]
  - Fatigue [Recovered/Resolved]
  - Psoriasis [Recovering/Resolving]
  - Psoriasis [Recovering/Resolving]
  - Psoriasis [Not Recovered/Not Resolved]
  - Stomatitis [Recovered/Resolved]
